FAERS Safety Report 13657666 (Version 1)
Quarter: 2017Q2

REPORT INFORMATION
  Report Type: Other
  Country: GB (occurrence: IN)
  Receive Date: 20170615
  Receipt Date: 20170615
  Transmission Date: 20170830
  Serious: Yes (Other)
  Sender: FDA-Public Use
  Company Number: IN-INTERNATIONAL MEDICATION SYSTEMS, LIMITED-2022103

PATIENT
  Age: 11 Year
  Sex: Female

DRUGS (10)
  1. FENTANYL. [Suspect]
     Active Substance: FENTANYL
     Route: 062
  2. FENTANYL. [Suspect]
     Active Substance: FENTANYL
     Route: 062
  3. RISPERIDONE. [Concomitant]
     Active Substance: RISPERIDONE
  4. DICLOFENAC [Concomitant]
     Active Substance: DICLOFENAC
     Route: 048
  5. FENTANYL. [Suspect]
     Active Substance: FENTANYL
  6. MORPHINE [Suspect]
     Active Substance: MORPHINE
     Indication: ANALGESIC THERAPY
     Route: 048
  7. FLUPIRTINE [Concomitant]
     Active Substance: FLUPIRTINE
  8. DICYCLOVERINE [Concomitant]
     Active Substance: DICYCLOMINE HYDROCHLORIDE
     Route: 048
  9. MORPHINE SULFATE. [Suspect]
     Active Substance: MORPHINE SULFATE
     Route: 048
  10. HYOSCINE BUTYLBROMIDE [Concomitant]
     Active Substance: BUTYLSCOPOLAMINE

REACTIONS (2)
  - Toxicity to various agents [Recovering/Resolving]
  - Drug intolerance [Unknown]
